FAERS Safety Report 4592369-2 (Version None)
Quarter: 2005Q1

REPORT INFORMATION
  Report Type: 
  Country: None (occurrence: None)
  Receive Date: 20050228
  Receipt Date: 20041229
  Transmission Date: 20050727
  Serious: No
  Sender: FDA-Public Use
  Company Number: US-BRISTOL-MYERS SQUIBB COMPANY-12808929

PATIENT
  Age: 15 Year
  Sex: Male
  Weight: 68 kg

DRUGS (2)
  1. ABILIFY [Suspect]
     Indication: BIPOLAR DISORDER
     Route: 048
     Dates: start: 20040601
  2. ZOLOFT [Concomitant]

REACTIONS (2)
  - EYE MOVEMENT DISORDER [None]
  - EYELID FUNCTION DISORDER [None]
